FAERS Safety Report 12161682 (Version 1)
Quarter: 2016Q1

REPORT INFORMATION
  Report Type: Spontaneous
  Country: US (occurrence: US)
  Receive Date: 20160309
  Receipt Date: 20160309
  Transmission Date: 20160526
  Serious: Yes (Death)
  Sender: FDA-Public Use
  Company Number: US-BEH-2016059453

PATIENT
  Sex: Female
  Weight: 54 kg

DRUGS (22)
  1. GENTAMICIN. [Concomitant]
     Active Substance: GENTAMICIN
  2. ALBUTEROL. [Concomitant]
     Active Substance: ALBUTEROL
  3. PRIMAQUINE [Concomitant]
     Active Substance: PRIMAQUINE PHOSPHATE
  4. EPIPEN [Concomitant]
     Active Substance: EPINEPHRINE
  5. ALDARA [Concomitant]
     Active Substance: IMIQUIMOD
  6. DIPHENHYDRAMINE. [Concomitant]
     Active Substance: DIPHENHYDRAMINE
  7. ACYCLOVIR. [Concomitant]
     Active Substance: ACYCLOVIR
  8. HIZENTRA [Suspect]
     Active Substance: HUMAN IMMUNOGLOBULIN G
     Indication: IMMUNODEFICIENCY COMMON VARIABLE
     Route: 058
     Dates: start: 20140401
  9. HIZENTRA [Suspect]
     Active Substance: HUMAN IMMUNOGLOBULIN G
     Route: 058
     Dates: start: 20140401
  10. CLINDAMYCIN [Concomitant]
     Active Substance: CLINDAMYCIN\CLINDAMYCIN PHOSPHATE
  11. LORATADINE. [Concomitant]
     Active Substance: LORATADINE
  12. ULTRAVATE [Concomitant]
     Active Substance: HALOBETASOL PROPIONATE
  13. MULTIVITAMIN [Concomitant]
     Active Substance: VITAMINS
  14. LIDOCAINE. [Concomitant]
     Active Substance: LIDOCAINE
  15. MEROPENEM. [Concomitant]
     Active Substance: MEROPENEM
  16. PENTAM [Concomitant]
     Active Substance: PENTAMIDINE ISETHIONATE
  17. LASIX [Concomitant]
     Active Substance: FUROSEMIDE
  18. ZOLPIDEM [Concomitant]
     Active Substance: ZOLPIDEM\ZOLPIDEM TARTRATE
  19. MUPIROCIN. [Concomitant]
     Active Substance: MUPIROCIN
  20. VORICONAZOLE. [Concomitant]
     Active Substance: VORICONAZOLE
  21. PREDNISONE. [Concomitant]
     Active Substance: PREDNISONE
  22. ADVAIR HFA [Concomitant]
     Active Substance: FLUTICASONE PROPIONATE\SALMETEROL XINAFOATE

REACTIONS (1)
  - Death [Fatal]
